FAERS Safety Report 6159229-7 (Version None)
Quarter: 2009Q2

REPORT INFORMATION
  Report Type: 
  Country: None (occurrence: None)
  Receive Date: 20090417
  Receipt Date: 20090407
  Transmission Date: 20091009
  Serious: Yes (Hospitalization)
  Sender: FDA-Public Use
  Company Number: FR-PFIZER INC-2009194094

PATIENT

DRUGS (4)
  1. CELEBREX [Suspect]
     Dosage: UNK
     Route: 048
     Dates: end: 20090216
  2. FUROSEMIDE [Suspect]
     Dosage: 40 UNK, UNK
     Route: 048
     Dates: end: 20090216
  3. HYTACAND [Suspect]
     Dosage: 8MG/12.5MG
     Route: 048
     Dates: end: 20090216
  4. DIFFU K [Suspect]
     Dosage: UNK
     Route: 048
     Dates: end: 20090216

REACTIONS (3)
  - BLOOD CREATININE INCREASED [None]
  - BLOOD UREA INCREASED [None]
  - HYPERKALAEMIA [None]
